FAERS Safety Report 4703289-4 (Version None)
Quarter: 2005Q2

REPORT INFORMATION
  Report Type: 
  Country: None (occurrence: None)
  Receive Date: 20050629
  Receipt Date: 20050223
  Transmission Date: 20051028
  Serious: Yes (Hospitalization, Disabling)
  Sender: FDA-Public Use
  Company Number: US-MERCK-0502USA03487

PATIENT
  Age: 53 Year
  Sex: Female
  Weight: 66 kg

DRUGS (3)
  1. VIOXX [Suspect]
     Indication: OSTEOARTHRITIS
     Route: 048
     Dates: start: 20010701
  2. VIOXX [Suspect]
     Route: 048
     Dates: end: 20030217
  3. SYNTHROID [Concomitant]
     Route: 065

REACTIONS (21)
  - ABDOMINAL PAIN LOWER [None]
  - ASPARTATE AMINOTRANSFERASE INCREASED [None]
  - BACK DISORDER [None]
  - COLITIS ISCHAEMIC [None]
  - DEEP VEIN THROMBOSIS [None]
  - DEPRESSION [None]
  - DIVERTICULUM [None]
  - DYSPNOEA [None]
  - GASTRIC ULCER HAEMORRHAGE [None]
  - GASTROINTESTINAL DISORDER [None]
  - GASTROOESOPHAGEAL REFLUX DISEASE [None]
  - HIATUS HERNIA [None]
  - HIGH DENSITY LIPOPROTEIN DECREASED [None]
  - HYPERTENSION [None]
  - INFLUENZA [None]
  - INSOMNIA [None]
  - LEUKOCYTOSIS [None]
  - MIGRAINE [None]
  - NECK PAIN [None]
  - POST-TRAUMATIC STRESS DISORDER [None]
  - PULMONARY EMBOLISM [None]
